FAERS Safety Report 8717581 (Version 3)
Quarter: 2012Q4

REPORT INFORMATION
  Report Type: 
  Country: JP (occurrence: JP)
  Receive Date: 20120810
  Receipt Date: 20121221
  Transmission Date: 20130627
  Serious: Yes (Life-Threatening, Other)
  Sender: FDA-Public Use
  Company Number: JP-009507513-1208JPN002976

PATIENT
  Age: 77 Year
  Sex: Male

DRUGS (3)
  1. GLACTIV [Suspect]
     Indication: TYPE 2 DIABETES MELLITUS
     Dosage: 50 mg, qd
     Route: 048
     Dates: start: 20100416, end: 20111022
  2. AMARYL [Concomitant]
     Dosage: UNK
     Dates: start: 20100416, end: 20111022
  3. ACTOS [Concomitant]
     Dosage: UNK
     Dates: start: 20100416, end: 20111022

REACTIONS (2)
  - Lung neoplasm malignant [Unknown]
  - Bone cancer metastatic [Unknown]
